FAERS Safety Report 11658080 (Version 2)
Quarter: 2015Q4

REPORT INFORMATION
  Report Type: Spontaneous
  Country: KR (occurrence: KR)
  Receive Date: 20151024
  Receipt Date: 20151028
  Transmission Date: 20160304
  Serious: Yes (Hospitalization)
  Sender: FDA-Public Use
  Company Number: KR-AMGEN-KORCT2015112082

PATIENT
  Age: 67 Year
  Sex: Male
  Weight: 72.5 kg

DRUGS (18)
  1. G-LASTA [Suspect]
     Active Substance: PEGFILGRASTIM
     Indication: FEBRILE NEUTROPENIA
     Dosage: 6 MG, 1X/3WEEKS
     Route: 058
     Dates: start: 20150725, end: 20150725
  2. RITUXIMAB [Concomitant]
     Active Substance: RITUXIMAB
     Dosage: 705 MG, UNK
     Route: 042
     Dates: start: 20150914, end: 20150914
  3. CYCLOPHOSPHAMIDE. [Concomitant]
     Active Substance: CYCLOPHOSPHAMIDE
     Dosage: 1051.88 MG, UNK
     Route: 042
     Dates: start: 20150817, end: 20150817
  4. VINCRISTINE [Concomitant]
     Active Substance: VINCRISTINE
     Dosage: 2 MG, UNK
     Route: 042
     Dates: start: 20150914, end: 20150914
  5. RITUXIMAB [Concomitant]
     Active Substance: RITUXIMAB
     Dosage: 705 MG, UNK
     Route: 042
     Dates: start: 20150724, end: 20150724
  6. PREDNISOLONE. [Concomitant]
     Active Substance: PREDNISOLONE
     Dosage: 60 MG, UNK
     Route: 048
     Dates: start: 20150914, end: 20150914
  7. PREDNISOLONE. [Concomitant]
     Active Substance: PREDNISOLONE
     Dosage: 60 MG, UNK
     Route: 048
     Dates: start: 20150817, end: 20150817
  8. VINCRISTINE [Concomitant]
     Active Substance: VINCRISTINE
     Dosage: 2 MG, UNK
     Route: 042
     Dates: start: 20150817, end: 20150817
  9. G-LASTA [Suspect]
     Active Substance: PEGFILGRASTIM
     Dosage: 6 MG, 1X/3WEEKS
     Route: 058
     Dates: start: 20150818, end: 20150818
  10. G-LASTA [Suspect]
     Active Substance: PEGFILGRASTIM
     Dosage: 6 MG, 1X/3WEEKS
     Route: 058
     Dates: start: 20150915, end: 20150915
  11. DOXORUBICIN [Concomitant]
     Active Substance: DOXORUBICIN
     Dosage: 70.5 MG, UNK
     Route: 042
     Dates: start: 20150724, end: 20150724
  12. VINCRISTINE [Concomitant]
     Active Substance: VINCRISTINE
     Dosage: 2 MG, UNK
     Route: 042
     Dates: start: 20150724, end: 20150724
  13. RITUXIMAB [Concomitant]
     Active Substance: RITUXIMAB
     Dosage: 701.25 MG, UNK
     Route: 042
     Dates: start: 20150817, end: 20150817
  14. PREDNISOLONE. [Concomitant]
     Active Substance: PREDNISOLONE
     Dosage: 60 MG, UNK
     Route: 048
     Dates: start: 20150724, end: 20150724
  15. CYCLOPHOSPHAMIDE. [Concomitant]
     Active Substance: CYCLOPHOSPHAMIDE
     Dosage: 1057.5 MG, UNK
     Route: 042
     Dates: start: 20150724, end: 20150724
  16. CYCLOPHOSPHAMIDE. [Concomitant]
     Active Substance: CYCLOPHOSPHAMIDE
     Dosage: 1057.5 MG, UNK
     Route: 042
     Dates: start: 20150914, end: 20150914
  17. DOXORUBICIN [Concomitant]
     Active Substance: DOXORUBICIN
     Dosage: 70.13 MG, UNK
     Route: 042
     Dates: start: 20150817, end: 20150817
  18. DOXORUBICIN [Concomitant]
     Active Substance: DOXORUBICIN
     Dosage: 70.5 MG, UNK
     Route: 042
     Dates: start: 20150914, end: 20150914

REACTIONS (1)
  - Pneumonitis [Recovered/Resolved]

NARRATIVE: CASE EVENT DATE: 20150928
